FAERS Safety Report 16052704 (Version 1)
Quarter: 2019Q1

REPORT INFORMATION
  Report Type: Spontaneous
  Country: US (occurrence: US)
  Receive Date: 20190308
  Receipt Date: 20190308
  Transmission Date: 20190418
  Serious: Yes (Other)
  Sender: FDA-Public Use
  Company Number: US-PFIZER INC-2019095980

PATIENT
  Age: 54 Year
  Sex: Male
  Weight: 75.3 kg

DRUGS (1)
  1. LYRICA [Suspect]
     Active Substance: PREGABALIN
     Indication: DIABETIC NEUROPATHY
     Dosage: 200 MG, 3X/DAY
     Route: 048

REACTIONS (3)
  - Sepsis [Unknown]
  - Loss of consciousness [Unknown]
  - Mania [Unknown]

NARRATIVE: CASE EVENT DATE: 201803
